FAERS Safety Report 6312248-X (Version None)
Quarter: 2009Q3

REPORT INFORMATION
  Report Type: 
  Country: None (occurrence: None)
  Receive Date: 20090817
  Receipt Date: 20090806
  Transmission Date: 20100115
  Serious: Yes (Hospitalization)
  Sender: FDA-Public Use
  Company Number: FR-GENENTECH-258663

PATIENT
  Sex: Female
  Weight: 110 kg

DRUGS (3)
  1. BEVACIZUMAB [Suspect]
     Indication: OVARIAN EPITHELIAL CANCER
     Dosage: 900 MG, Q3W
     Route: 042
     Dates: start: 20080115
  2. CARBOPLATIN [Suspect]
     Indication: OVARIAN EPITHELIAL CANCER
     Dosage: 910 MG, UNK
     Route: 042
     Dates: start: 20071217
  3. PACLITAXEL [Suspect]
     Indication: OVARIAN EPITHELIAL CANCER
     Dosage: 400 MG, UNK
     Route: 042
     Dates: start: 20071217

REACTIONS (2)
  - FEBRILE NEUTROPENIA [None]
  - MUCOSAL INFLAMMATION [None]
